FAERS Safety Report 4326763-1 (Version None)
Quarter: 2004Q1

REPORT INFORMATION
  Report Type: 
  Country: None (occurrence: None)
  Receive Date: 20040322
  Receipt Date: 20040204
  Transmission Date: 20041129
  Serious: No
  Sender: FDA-Public Use
  Company Number: PHEH2004US01683

PATIENT
  Sex: Male

DRUGS (1)
  1. ZOMETA [Suspect]
     Dates: start: 20040203, end: 20040203

REACTIONS (1)
  - MEDICATION ERROR [None]
